FAERS Safety Report 4990558-6 (Version None)
Quarter: 2006Q2

REPORT INFORMATION
  Report Type: 
  Country: None (occurrence: None)
  Receive Date: 20060427
  Receipt Date: 20051011
  Transmission Date: 20061013
  Serious: Yes (Hospitalization, Other)
  Sender: FDA-Public Use
  Company Number: 2005141141

PATIENT
  Age: 71 Year
  Sex: Female
  Weight: 136.9863 kg

DRUGS (1)
  1. BEXTRA [Suspect]
     Indication: ILL-DEFINED DISORDER
     Dosage: 20 MG
     Dates: start: 20041007, end: 20041016

REACTIONS (3)
  - DRUG HYPERSENSITIVITY [None]
  - ORAL MUCOSAL DISORDER [None]
  - STEVENS-JOHNSON SYNDROME [None]
